FAERS Safety Report 10210399 (Version 4)
Quarter: 2014Q3

REPORT INFORMATION
  Report Type: Spontaneous
  Country: US (occurrence: US)
  Receive Date: 20140602
  Receipt Date: 20140702
  Transmission Date: 20150326
  Serious: Yes (Hospitalization, Other)
  Sender: FDA-Public Use
  Company Number: US-DENDREON CORPORATION-2014PROUSA03768

PATIENT
  Age: 55 Year
  Sex: Male
  Weight: 163.26 kg

DRUGS (3)
  1. ENZALUTAMIDE [Concomitant]
     Active Substance: ENZALUTAMIDE
     Indication: PRODUCT USED FOR UNKNOWN INDICATION
  2. PROVENGE [Suspect]
     Active Substance: SIPULEUCEL-T
     Dosage: 250 ML, SINGLE
     Route: 042
     Dates: start: 20140512, end: 20140512
  3. PROVENGE [Suspect]
     Active Substance: SIPULEUCEL-T
     Indication: PROSTATE CANCER METASTATIC
     Dosage: 250 ML, SINGLE
     Route: 042
     Dates: start: 20140417, end: 20140417

REACTIONS (4)
  - Cardiac valve vegetation [Recovering/Resolving]
  - Device related sepsis [Recovered/Resolved]
  - Catheter site pain [Recovered/Resolved]
  - Sepsis syndrome [None]

NARRATIVE: CASE EVENT DATE: 20140527
